FAERS Safety Report 9817924 (Version 1)
Quarter: 2013Q4

REPORT INFORMATION
  Report Type: Spontaneous
  Country: US (occurrence: None)
  Receive Date: 20131223
  Receipt Date: 20131223
  Transmission Date: 20140711
  Serious: Yes (Other)
  Sender: FDA-Public Use
  Company Number: 218546

PATIENT
  Age: 66 Year
  Sex: Female

DRUGS (4)
  1. PICATO [Suspect]
     Indication: ACTINIC KERATOSIS
     Dosage: (1 IN 1 D),TOPICAL
     Route: 061
     Dates: start: 20120803
  2. VERAPAMIL (VERAPAMIL) [Concomitant]
  3. LISINOPRIL (LISINOPRIL) [Concomitant]
  4. SIMVASTATIN (SIMVASTATIN) [Concomitant]

REACTIONS (3)
  - Application site burn [None]
  - Application site erythema [None]
  - Drug administered at inappropriate site [None]
